FAERS Safety Report 25956446 (Version 2)
Quarter: 2025Q4

REPORT INFORMATION
  Report Type: Report from Study
  Country: IN (occurrence: IN)
  Receive Date: 20251024
  Receipt Date: 20251217
  Transmission Date: 20260118
  Serious: Yes (Hospitalization, Other)
  Sender: ROCHE
  Company Number: IN-ROCHE-10000310115

PATIENT
  Age: 47 Year
  Sex: Female
  Weight: 58 kg

DRUGS (1)
  1. PHESGO [Suspect]
     Active Substance: HYALURONIDASE-ZZXF\PERTUZUMAB\TRASTUZUMAB
     Indication: HER2 positive breast cancer
     Route: 058

REACTIONS (18)
  - Pain [Not Recovered/Not Resolved]
  - Fatigue [Recovering/Resolving]
  - Pruritus [Not Recovered/Not Resolved]
  - Diarrhoea [Recovering/Resolving]
  - Mouth ulceration [Recovering/Resolving]
  - Rash [Not Recovered/Not Resolved]
  - Weight decreased [Unknown]
  - Dyspepsia [Not Recovered/Not Resolved]
  - Chills [Recovering/Resolving]
  - Infection [Not Recovered/Not Resolved]
  - Full blood count abnormal [Recovered/Resolved]
  - Vomiting [Recovering/Resolving]
  - Blood potassium decreased [Recovering/Resolving]
  - Abdominal distension [Not Recovered/Not Resolved]
  - Hypoaesthesia [Not Recovered/Not Resolved]
  - Lymphadenectomy [Recovered/Resolved]
  - Breast conserving surgery [Recovered/Resolved]
  - Memory impairment [Not Recovered/Not Resolved]

NARRATIVE: CASE EVENT DATE: 20250928
